FAERS Safety Report 24603434 (Version 1)
Quarter: 2024Q4

REPORT INFORMATION
  Report Type: Spontaneous
  Country: AU (occurrence: AU)
  Receive Date: 20241111
  Receipt Date: 20241111
  Transmission Date: 20250115
  Serious: Yes (Other)
  Sender: MYLAN
  Company Number: AU-MYLANLABS-2024M1100471

PATIENT
  Age: 15 Year
  Sex: Female

DRUGS (2)
  1. AMLODIPINE [Suspect]
     Active Substance: AMLODIPINE BESYLATE
     Indication: Hypertension
     Dosage: 10 MILLIGRAM, QD
     Route: 065
  2. SUNITINIB [Concomitant]
     Active Substance: SUNITINIB
     Indication: Paraganglion neoplasm
     Dosage: UNK (RE-STARTED AT A LOW DOSE)
     Route: 065

REACTIONS (4)
  - Lethargy [Unknown]
  - Malaise [Unknown]
  - Hyperaesthesia [Unknown]
  - Nausea [Unknown]
